FAERS Safety Report 9268985 (Version 1)
Quarter: 2013Q2

REPORT INFORMATION
  Report Type: Spontaneous
  Country: US (occurrence: US)
  Receive Date: 20130503
  Receipt Date: 20130503
  Transmission Date: 20140414
  Serious: No
  Sender: FDA-Public Use
  Company Number: US-009507513-1304USA016637

PATIENT
  Sex: Male

DRUGS (1)
  1. ZIOPTAN [Suspect]
     Indication: INTRAOCULAR PRESSURE INCREASED
     Route: 031

REACTIONS (2)
  - Eye pruritus [Recovered/Resolved]
  - Ocular hyperaemia [Recovered/Resolved]
